FAERS Safety Report 10192597 (Version 4)
Quarter: 2014Q3

REPORT INFORMATION
  Report Type: Spontaneous
  Country: NO (occurrence: NO)
  Receive Date: 20140523
  Receipt Date: 20140903
  Transmission Date: 20150326
  Serious: Yes (Disabling)
  Sender: FDA-Public Use
  Company Number: NO-PFIZER INC-2014138527

PATIENT
  Age: 23 Year
  Sex: Male

DRUGS (18)
  1. METHOTREXATE SODIUM. [Suspect]
     Active Substance: METHOTREXATE SODIUM
     Indication: T-CELL TYPE ACUTE LEUKAEMIA
     Dosage: ACCORDING TO NOPHO-ALL 2000 PROTOCOL
     Dates: start: 20070425, end: 2009
  2. LANVIS [Suspect]
     Active Substance: THIOGUANINE ANHYDROUS
     Indication: T-CELL TYPE ACUTE LEUKAEMIA
     Dosage: ACCORDING TO THE NOPHO-ALL 2000 PROTOCOL
     Route: 048
     Dates: start: 20070613, end: 20080723
  3. DEXAMETHASONE. [Suspect]
     Active Substance: DEXAMETHASONE
     Indication: T-CELL TYPE ACUTE LEUKAEMIA
     Dosage: ACCORDING TO THE NOPHO-ALL 2000 PROTOCOL
     Route: 048
     Dates: start: 20071031, end: 2009
  4. PURINETHOL [Suspect]
     Active Substance: MERCAPTOPURINE
     Indication: T-CELL TYPE ACUTE LEUKAEMIA
     Dosage: DAYS 1-45 OF NOPHO-ALL 2000 PROTOCOL
     Dates: start: 20080213
  5. CARMUSTINE [Suspect]
     Active Substance: CARMUSTINE
     Indication: T-CELL TYPE ACUTE LEUKAEMIA
     Dosage: ACOORDING TO THE NOPHO-ALL 2000 PROTOCOL
     Dates: start: 20080630, end: 20080825
  6. HYDROXYUREA. [Suspect]
     Active Substance: HYDROXYUREA
     Indication: T-CELL TYPE ACUTE LEUKAEMIA
     Dosage: 5000 MG, 1X/DAY DAY 15-18 OF FIRST LSA2L2 CYCLE
     Dates: start: 20080611, end: 20080614
  7. CYTARABINE. [Suspect]
     Active Substance: CYTARABINE
     Indication: T-CELL TYPE ACUTE LEUKAEMIA
     Dosage: ACCORDING TO THE NOPHO-ALL 2000 PROTOCOL
     Route: 042
     Dates: start: 20070713, end: 20080903
  8. ONCOVIN [Suspect]
     Active Substance: VINCRISTINE SULFATE
     Indication: T-CELL TYPE ACUTE LEUKAEMIA
     Dosage: ACCORDING TO THE NOPHO-ALL 2000 PROTOCOL
     Route: 042
     Dates: start: 20070425, end: 2009
  9. L-ASPARAGINASE [Suspect]
     Active Substance: ASPARAGINASE
     Indication: T-CELL TYPE ACUTE LEUKAEMIA
     Dosage: ACCORDING TO THE NOPHO-ALL 2000 PROTOCOL
     Route: 030
     Dates: start: 20070531, end: 20071031
  10. DAUNORUBICIN [Suspect]
     Active Substance: DAUNORUBICIN
     Indication: T-CELL TYPE ACUTE LEUKAEMIA
     Dosage: ACCORDING TO THE NOPHO-ALL 2000 PROTOCOL
     Route: 042
     Dates: start: 20080616, end: 20080811
  11. DOXORUBICIN HCL [Suspect]
     Active Substance: DOXORUBICIN HYDROCHLORIDE
     Indication: T-CELL TYPE ACUTE LEUKAEMIA
     Dosage: ACCORDING TO NOPHO-ALL 2000 PROTOCOL
     Route: 042
     Dates: start: 20070425, end: 20071114
  12. PREDNISOLON [Suspect]
     Active Substance: PREDNISOLONE
     Indication: T-CELL TYPE ACUTE LEUKAEMIA
     Dosage: 50 MG, 2X/DAY
     Dates: start: 20070420, end: 20070424
  13. PREDNISOLON [Suspect]
     Active Substance: PREDNISOLONE
     Dosage: 65 MG + 50 MG CONT. FOR SIX WEEKS
     Dates: start: 20070425
  14. VINCRISTINE [Suspect]
     Active Substance: VINCRISTINE
     Indication: T-CELL TYPE ACUTE LEUKAEMIA
     Dosage: 2 MG, 1X/DAY (DAY 47 OF FIRST LSA2L2 CYCLE)
     Route: 042
     Dates: start: 20080713, end: 20080713
  15. PURINETHOL [Suspect]
     Active Substance: MERCAPTOPURINE
     Indication: PANCYTOPENIA
     Dosage: 150 MG, 1X/DAY IN THE EVENING
     Dates: start: 20080924, end: 2009
  16. METHOTREXATE SODIUM. [Suspect]
     Active Substance: METHOTREXATE SODIUM
     Indication: PANCYTOPENIA
  17. CYTOSAR [Suspect]
     Active Substance: CYTARABINE
     Indication: T-CELL TYPE ACUTE LEUKAEMIA
     Dosage: ACCORDING TO THE NOPHO-ALL 2000 PROTOCOL
     Route: 042
     Dates: start: 20070615, end: 20071214
  18. CYCLOPHOSPHAMIDE. [Suspect]
     Active Substance: CYCLOPHOSPHAMIDE
     Indication: T-CELL TYPE ACUTE LEUKAEMIA
     Dosage: ACCORDING TO THE NOPHO-ALL 2000 PROTOCOL
     Route: 042
     Dates: start: 20070613, end: 20070711

REACTIONS (3)
  - Hip deformity [Unknown]
  - Deafness [Not Recovered/Not Resolved]
  - Osteonecrosis [Not Recovered/Not Resolved]

NARRATIVE: CASE EVENT DATE: 20120906
